FAERS Safety Report 8929250 (Version 1)
Quarter: 2012Q4

REPORT INFORMATION
  Report Type: Spontaneous
  Country: US (occurrence: None)
  Receive Date: 20121126
  Receipt Date: 20121126
  Transmission Date: 20130627
  Serious: Yes (Hospitalization, Disabling, Other)
  Sender: FDA-Public Use
  Company Number: None

PATIENT
  Age: 48 Year
  Sex: Male
  Weight: 111.59 kg

DRUGS (1)
  1. KENALOG [Suspect]
     Indication: DEGENERATIVE DISC DISEASE
     Dosage: 8 mg   Lumbar posterior to the ligamentum flavum
     Dates: start: 20120130

REACTIONS (5)
  - Leukocytosis [None]
  - Systemic inflammatory response syndrome [None]
  - Accelerated hypertension [None]
  - Secondary hypogonadism [None]
  - Injection site extravasation [None]
